FAERS Safety Report 9351048 (Version 1)
Quarter: 2013Q2

REPORT INFORMATION
  Report Type: Spontaneous
  Country: US (occurrence: US)
  Receive Date: 20130617
  Receipt Date: 20130617
  Transmission Date: 20140414
  Serious: Yes (Hospitalization)
  Sender: FDA-Public Use
  Company Number: US-NOVOPROD-380192

PATIENT
  Age: 55 Year
  Sex: Male
  Weight: 172.34 kg

DRUGS (2)
  1. LEVEMIR FLEXPEN [Suspect]
     Indication: TYPE 2 DIABETES MELLITUS
     Dosage: 65 U AM, 65 U HS
     Route: 058
     Dates: start: 2010
  2. NOVOLOG FLEXPEN [Concomitant]
     Indication: TYPE 2 DIABETES MELLITUS
     Dosage: 10 U TID BEFORE MEALS
     Route: 058

REACTIONS (1)
  - Perirectal abscess [Recovered/Resolved]
